FAERS Safety Report 5266704-6 (Version None)
Quarter: 2007Q1

REPORT INFORMATION
  Report Type: 
  Country: None (occurrence: None)
  Receive Date: 20070315
  Receipt Date: 20070305
  Transmission Date: 20070707
  Serious: Yes (Death)
  Sender: FDA-Public Use
  Company Number: FR-MERCK-0703FRA00031

PATIENT
  Age: 50 Year
  Sex: Female

DRUGS (4)
  1. PRIMAXIN [Suspect]
     Indication: SEPTIC SHOCK
     Route: 042
  2. VANCOMYCIN [Concomitant]
     Indication: SEPTIC SHOCK
     Route: 042
  3. GENTAMICIN [Concomitant]
     Indication: SEPTIC SHOCK
     Route: 042
  4. FLUCONAZOLE [Concomitant]
     Indication: SEPTIC SHOCK
     Route: 042

REACTIONS (2)
  - DEATH [None]
  - PATHOGEN RESISTANCE [None]
